FAERS Safety Report 5087440-5 (Version None)
Quarter: 2006Q3

REPORT INFORMATION
  Report Type: 
  Country: None (occurrence: None)
  Receive Date: 20060727
  Receipt Date: 20060516
  Transmission Date: 20061208
  Serious: Yes (Other)
  Sender: FDA-Public Use
  Company Number: 2006065153

PATIENT
  Age: 25 Year
  Sex: Female
  Weight: 58.9676 kg

DRUGS (5)
  1. LYRICA [Suspect]
     Indication: NEURALGIA
     Dosage: 100 MG (50 MG, 2 IN 1 D), ORAL
     Route: 048
     Dates: start: 20060101
  2. CYMBALTA [Concomitant]
  3. MIRAPEX [Concomitant]
  4. PROVIGIL [Concomitant]
  5. ALLEGRA [Concomitant]

REACTIONS (3)
  - NEURALGIA [None]
  - SOMNOLENCE [None]
  - VISION BLURRED [None]
